FAERS Safety Report 8004788-2 (Version None)
Quarter: 2011Q4

REPORT INFORMATION
  Report Type: 
  Country: None (occurrence: None)
  Receive Date: 20111223
  Receipt Date: 20111215
  Transmission Date: 20120403
  Serious: Yes (Hospitalization)
  Sender: FDA-Public Use
  Company Number: JP-ASTELLAS-2011US008331

PATIENT
  Sex: Male
  Weight: 58 kg

DRUGS (17)
  1. AMLODIPINE [Concomitant]
     Indication: HYPERTENSION
     Dosage: 2.5 MG, UID/QD
     Route: 048
  2. ERLOTINIB HYDROCHLORIDE [Suspect]
     Indication: NON-SMALL CELL LUNG CANCER
     Dosage: 150 MG, UID/QD
     Route: 048
     Dates: start: 20110629, end: 20111205
  3. PRAVASTATIN SODIUM [Concomitant]
     Indication: HYPERLIPIDAEMIA
     Dosage: 10 MG, UID/QD
     Route: 048
  4. XYLOCAINE [Concomitant]
     Indication: STOMATITIS
     Dosage: 10 ML, SEVERAL TIMES DAILY
     Route: 048
     Dates: start: 20110926
  5. LOXONIN [Concomitant]
     Indication: BACK PAIN
     Dosage: 180 MG, UID/QD
     Route: 048
  6. MINOCYCLINE HCL [Concomitant]
     Indication: PARONYCHIA
     Dosage: 200 MG, UID/QD
     Route: 048
     Dates: start: 20110829
  7. HIRUDOID [Concomitant]
     Indication: DRY SKIN
     Dosage: UNK DF, UID/QD
     Route: 061
     Dates: start: 20111024
  8. CLOBETASOL PROPIONATE [Concomitant]
     Indication: PARONYCHIA
     Dosage: UNK
     Route: 061
     Dates: start: 20111024
  9. RINDERON-VG [Concomitant]
     Indication: PARONYCHIA
     Dosage: UNK
     Route: 061
     Dates: start: 20110829
  10. EVIPROSTAT [Concomitant]
     Indication: BENIGN PROSTATIC HYPERPLASIA
     Dosage: 3 DF, UID/QD
     Route: 048
  11. RABEPRAZOLE SODIUM [Concomitant]
     Indication: GASTRITIS PROPHYLAXIS
     Dosage: 10 MG, UID/QD
     Route: 048
  12. ASTOMIN [Concomitant]
     Indication: COUGH
     Dosage: 30 MG, UID/QD
     Route: 048
     Dates: start: 20110705
  13. DEXALTIN [Concomitant]
     Indication: STOMATITIS
     Dosage: UNK, SEVERAL TIMES DAILY
     Route: 048
     Dates: start: 20110926
  14. LOCOID [Concomitant]
     Indication: DRY SKIN
     Dosage: UNK
     Route: 061
     Dates: start: 20111024
  15. TAMSULOSIN HCL [Concomitant]
     Indication: BENIGN PROSTATIC HYPERPLASIA
     Dosage: 0.2 DF, UID/QD
     Route: 048
  16. OLOPATADINE HCL [Concomitant]
     Indication: DERMATITIS ACNEIFORM
     Dosage: 10 MG, UID/QD
     Route: 048
     Dates: start: 20110702
  17. URSO 250 [Concomitant]
     Indication: ASPARTATE AMINOTRANSFERASE INCREASED
     Dosage: 300 MG, UID/QD
     Route: 048
     Dates: start: 20111017

REACTIONS (5)
  - CONTUSION [None]
  - LUMBAR VERTEBRAL FRACTURE [None]
  - PYREXIA [None]
  - PNEUMONIA [None]
  - FALL [None]
